FAERS Safety Report 10434334 (Version 4)
Quarter: 2015Q2

REPORT INFORMATION
  Report Type: Report from Study
  Country: JP (occurrence: JP)
  Receive Date: 20140905
  Receipt Date: 20150615
  Transmission Date: 20150821
  Serious: Yes (Other)
  Sender: FDA-Public Use
  Company Number: JP-JNJFOC-20140620773

PATIENT
  Age: 70 Year
  Sex: Male
  Weight: 70 kg

DRUGS (6)
  1. SOVRIAD [Suspect]
     Active Substance: SIMEPREVIR
     Indication: CHRONIC HEPATITIS C
     Route: 065
     Dates: start: 20140203, end: 20140427
  2. PEGINTRON [Suspect]
     Active Substance: PEGINTERFERON ALFA-2B
     Indication: CHRONIC HEPATITIS C
     Route: 058
     Dates: start: 20140203, end: 20140526
  3. URSO [Concomitant]
     Active Substance: URSODIOL
     Indication: CHRONIC HEPATITIS C
     Route: 048
  4. PEGINTRON [Suspect]
     Active Substance: PEGINTERFERON ALFA-2B
     Indication: CHRONIC HEPATITIS C
     Route: 058
     Dates: start: 20140702, end: 20140714
  5. RIBAVIRIN. [Suspect]
     Active Substance: RIBAVIRIN
     Indication: CHRONIC HEPATITIS C
     Route: 048
     Dates: start: 20140203
  6. DIACORT [Concomitant]
     Active Substance: DIFLORASONE DIACETATE
     Indication: PRODUCT USED FOR UNKNOWN INDICATION
     Route: 061
     Dates: start: 20140317, end: 20140601

REACTIONS (6)
  - Blood triglycerides increased [Recovered/Resolved]
  - Pyrexia [Recovering/Resolving]
  - Eczema [Recovered/Resolved]
  - Rhinitis allergic [Recovering/Resolving]
  - Haemolytic anaemia [Recovering/Resolving]
  - Eczema [Recovered/Resolved]

NARRATIVE: CASE EVENT DATE: 20140210
